FAERS Safety Report 5589521-6 (Version None)
Quarter: 2008Q1

REPORT INFORMATION
  Report Type: 
  Country: None (occurrence: None)
  Receive Date: 20080114
  Receipt Date: 20080103
  Transmission Date: 20080703
  Serious: Yes (Other)
  Sender: FDA-Public Use
  Company Number: BR-AVENTIS-200810348GDDC

PATIENT
  Age: 24 Year
  Sex: Female
  Weight: 66 kg

DRUGS (3)
  1. AMARYL [Suspect]
     Dosage: DOSE QUANTITY: 1
     Route: 048
     Dates: start: 20050101
  2. TENORETIC 100 [Concomitant]
     Indication: HYPERTENSION
     Dosage: DOSE QUANTITY: 1
     Route: 048
     Dates: start: 20050101
  3. GLIFAGE [Concomitant]
     Dosage: DOSE QUANTITY: 1
     Route: 048
     Dates: start: 20050101

REACTIONS (1)
  - INFERTILITY [None]
